FAERS Safety Report 15919928 (Version 1)
Quarter: 2019Q1

REPORT INFORMATION
  Report Type: Spontaneous
  Country: US (occurrence: US)
  Receive Date: 20190205
  Receipt Date: 20190205
  Transmission Date: 20190417
  Serious: No
  Sender: FDA-Public Use
  Company Number: US-ROCHE-2151412

PATIENT
  Sex: Female

DRUGS (1)
  1. XOLAIR [Suspect]
     Active Substance: OMALIZUMAB
     Indication: ASTHMA
     Dosage: DATE OF THERAPY: 3 WEEKS?150 MG VIAL
     Route: 058

REACTIONS (3)
  - Fatigue [Unknown]
  - Dyspnoea [Unknown]
  - Cough [Unknown]
